FAERS Safety Report 5414695-7 (Version None)
Quarter: 2007Q3

REPORT INFORMATION
  Report Type: 
  Country: None (occurrence: None)
  Receive Date: 20070813
  Receipt Date: 20070713
  Transmission Date: 20080115
  Serious: Yes (Hospitalization)
  Sender: FDA-Public Use
  Company Number: 2007BI016673

PATIENT
  Age: 26 Year
  Sex: Female

DRUGS (8)
  1. NATALIZUMAB [Suspect]
     Indication: MULTIPLE SCLEROSIS
     Dosage: 300 MG;QM;IV
     Route: 030
     Dates: start: 20070216, end: 20070518
  2. NEURONTIN [Concomitant]
  3. BACLOFEN [Concomitant]
  4. ZOLOFT [Concomitant]
  5. COLACE [Concomitant]
  6. ZANTAC 150 [Concomitant]
  7. DURAGESIC-100 [Concomitant]
  8. CORTICOSTEROIDS [Concomitant]

REACTIONS (5)
  - CELLULITIS STAPHYLOCOCCAL [None]
  - DEMYELINATION [None]
  - MULTIPLE SCLEROSIS [None]
  - NUCLEAR MAGNETIC RESONANCE IMAGING BRAIN ABNORMAL [None]
  - STAPHYLOCOCCAL ABSCESS [None]
